FAERS Safety Report 13716951 (Version 2)
Quarter: 2020Q4

REPORT INFORMATION
  Report Type: Spontaneous
  Country: US (occurrence: US)
  Receive Date: 20170705
  Receipt Date: 20201020
  Transmission Date: 20210113
  Serious: Yes (Hospitalization)
  Sender: FDA-Public Use
  Company Number: US-BAYER-2017-002499

PATIENT
  Age: 74 Year
  Sex: Male

DRUGS (5)
  1. XARELTO [Suspect]
     Active Substance: RIVAROXABAN
     Indication: AORTIC VALVE REPLACEMENT
     Dosage: UNK
     Route: 048
     Dates: start: 20160204, end: 20160507
  2. XARELTO [Suspect]
     Active Substance: RIVAROXABAN
     Indication: AORTIC VALVE REPLACEMENT
     Dosage: UNK
     Route: 048
     Dates: start: 20160204, end: 20160507
  3. XARELTO [Suspect]
     Active Substance: RIVAROXABAN
     Indication: DEEP VEIN THROMBOSIS
  4. XARELTO [Suspect]
     Active Substance: RIVAROXABAN
     Indication: DEEP VEIN THROMBOSIS
  5. BAYER LOW DOSE [Suspect]
     Active Substance: ASPIRIN
     Indication: CARDIAC DISORDER
     Dosage: 1 DF, QD
     Route: 048
     Dates: end: 20160522

REACTIONS (1)
  - Subdural haematoma [Recovering/Resolving]

NARRATIVE: CASE EVENT DATE: 20160505
